FAERS Safety Report 11335653 (Version 1)
Quarter: 2015Q3

REPORT INFORMATION
  Report Type: Spontaneous
  Country: US (occurrence: US)
  Receive Date: 20150804
  Receipt Date: 20150804
  Transmission Date: 20151125
  Serious: No
  Sender: FDA-Public Use
  Company Number: US-GLAXOSMITHKLINE-US2015109495

PATIENT
  Sex: Female

DRUGS (12)
  1. ECOTRIN [Concomitant]
     Active Substance: ASPIRIN
  2. LOVAZA [Suspect]
     Active Substance: OMEGA-3-ACID ETHYL ESTERS
     Indication: BLOOD CHOLESTEROL INCREASED
     Dosage: 4 DF, QD
     Route: 048
  3. BENICAR [Concomitant]
     Active Substance: OLMESARTAN MEDOXOMIL
  4. ZETIA [Concomitant]
     Active Substance: EZETIMIBE
  5. VITAMIN B COMPLEX [Concomitant]
     Active Substance: CYANOCOBALAMIN\DEXPANTHENOL\NIACINAMIDE\PYRIDOXINE HYDROCHLORIDE\RIBOFLAVIN 5^-PHOSPHATE SODIUM\THIAMINE HYDROCHLORIDE\VITAMIN B COMPLEX
  6. GARLIC. [Concomitant]
     Active Substance: GARLIC
  7. ACIPHEX [Concomitant]
     Active Substance: RABEPRAZOLE SODIUM
  8. CRESTOR [Concomitant]
     Active Substance: ROSUVASTATIN CALCIUM
  9. METOPROLOL [Concomitant]
     Active Substance: METOPROLOL
  10. LOVAZA [Suspect]
     Active Substance: OMEGA-3-ACID ETHYL ESTERS
     Indication: BLOOD TRIGLYCERIDES INCREASED
  11. D3 [Concomitant]
     Active Substance: 25-HYDROXYCHOLECALCIFEROL, 5-TRANS-
  12. VITAMIN B12 [Concomitant]
     Active Substance: CYANOCOBALAMIN

REACTIONS (5)
  - Gastrooesophageal reflux disease [Recovered/Resolved]
  - Nasopharyngitis [Recovered/Resolved]
  - Oropharyngeal pain [Recovered/Resolved]
  - Throat irritation [Not Recovered/Not Resolved]
  - Abdominal discomfort [Not Recovered/Not Resolved]
